FAERS Safety Report 8535828 (Version 3)
Quarter: 2021Q3

REPORT INFORMATION
  Report Type: Spontaneous
  Country: NL (occurrence: NL)
  Receive Date: 20120430
  Receipt Date: 20210804
  Transmission Date: 20211014
  Serious: Yes (Death, Hospitalization)
  Sender: FDA-Public Use
  Company Number: PHHY2012NL036101

PATIENT
  Age: 71 Year
  Sex: Male

DRUGS (4)
  1. LAMIVUDINE. [Concomitant]
     Active Substance: LAMIVUDINE
     Indication: PRODUCT USED FOR UNKNOWN INDICATION
     Dosage: 100 MG, QD
     Route: 065
  2. ISONIAZID. [Concomitant]
     Active Substance: ISONIAZID
     Indication: TUBERCULOSIS
     Dosage: UNK
     Route: 065
  3. PREDNISONE. [Suspect]
     Active Substance: PREDNISONE
     Indication: POLYMYALGIA RHEUMATICA
     Dosage: UNK
     Route: 065
  4. ENTECAVIR. [Concomitant]
     Active Substance: ENTECAVIR
     Indication: PRODUCT USED FOR UNKNOWN INDICATION
     Dosage: 0.5 MG, QD
     Route: 065

REACTIONS (11)
  - Hepatorenal syndrome [Fatal]
  - Ascites [Not Recovered/Not Resolved]
  - Hepatitis B reactivation [Fatal]
  - Hepatic failure [Fatal]
  - Malaise [Fatal]
  - Hepatic cirrhosis [Fatal]
  - Hyperbilirubinaemia [Fatal]
  - Encephalopathy [Fatal]
  - Lactic acidosis [Fatal]
  - General physical health deterioration [Fatal]
  - Weight decreased [Fatal]
